FAERS Safety Report 22184681 (Version 4)
Quarter: 2023Q2

REPORT INFORMATION
  Report Type: Report from Study
  Country: US (occurrence: US)
  Receive Date: 20230407
  Receipt Date: 20230628
  Transmission Date: 20230721
  Serious: No
  Sender: FDA-Public Use
  Company Number: US-002147023-NVSC2023US079758

PATIENT
  Sex: Female

DRUGS (1)
  1. PIQRAY [Suspect]
     Active Substance: ALPELISIB
     Indication: Product used for unknown indication
     Dosage: UNK
     Route: 048

REACTIONS (11)
  - Burning sensation [Unknown]
  - Constipation [Unknown]
  - Hypertonic bladder [Unknown]
  - Pollakiuria [Unknown]
  - Blood glucose increased [Unknown]
  - Diarrhoea [Unknown]
  - Fatigue [Unknown]
  - Rash [Unknown]
  - Rash papular [Unknown]
  - Pruritus [Unknown]
  - Urinary tract infection [Unknown]
